FAERS Safety Report 10661533 (Version 1)
Quarter: 2014Q4

REPORT INFORMATION
  Report Type: Report from Study
  Country: US (occurrence: US)
  Receive Date: 20141218
  Receipt Date: 20141218
  Transmission Date: 20150529
  Serious: Yes (Hospitalization, Other)
  Sender: FDA-Public Use
  Company Number: PHEH2014US024731

PATIENT
  Age: 68 Year
  Sex: Female

DRUGS (1)
  1. GLEEVEC [Suspect]
     Active Substance: IMATINIB MESYLATE
     Indication: LEUKAEMIA
     Dosage: 400 MG, QD
     Route: 048
     Dates: start: 201302

REACTIONS (10)
  - Pulmonary mass [Recovering/Resolving]
  - Precancerous skin lesion [Unknown]
  - Neuropathy peripheral [Unknown]
  - Clostridium difficile colitis [Unknown]
  - Hypokalaemia [Unknown]
  - Blood disorder [Unknown]
  - Failure to thrive [Unknown]
  - Balance disorder [Recovering/Resolving]
  - Osteopenia [Unknown]
  - Fatigue [Unknown]

NARRATIVE: CASE EVENT DATE: 20130207
